FAERS Safety Report 4439385-9 (Version None)
Quarter: 2004Q3

REPORT INFORMATION
  Report Type: 
  Country: None (occurrence: None)
  Receive Date: 20040728
  Receipt Date: 20040420
  Transmission Date: 20050211
  Serious: No
  Sender: FDA-Public Use
  Company Number: USA040465412

PATIENT
  Age: 7 Year
  Sex: Male
  Weight: 20 kg

DRUGS (2)
  1. STRATTERA [Suspect]
     Indication: ATTENTION DEFICIT/HYPERACTIVITY DISORDER
     Dosage: 40 MG DAY
     Dates: start: 20040301
  2. CONCERTA [Concomitant]

REACTIONS (5)
  - AGGRESSION [None]
  - ANGER [None]
  - BELLIGERENCE [None]
  - DISTURBANCE IN ATTENTION [None]
  - PRESCRIBED OVERDOSE [None]
